FAERS Safety Report 11137889 (Version 3)
Quarter: 2015Q3

REPORT INFORMATION
  Report Type: Report from Study
  Country: US (occurrence: US)
  Receive Date: 20150526
  Receipt Date: 20150731
  Transmission Date: 20151125
  Serious: Yes (Hospitalization)
  Sender: FDA-Public Use
  Company Number: US-JNJFOC-20150514468

PATIENT
  Age: 69 Year
  Sex: Female

DRUGS (3)
  1. IMBRUVICA [Suspect]
     Active Substance: IBRUTINIB
     Indication: CHRONIC LYMPHOCYTIC LEUKAEMIA
     Route: 048
     Dates: start: 20150420, end: 2015
  2. PREDNISONE. [Concomitant]
     Active Substance: PREDNISONE
     Indication: HAEMOLYSIS
  3. IMBRUVICA [Suspect]
     Active Substance: IBRUTINIB
     Indication: CHRONIC LYMPHOCYTIC LEUKAEMIA
     Route: 048
     Dates: start: 2015

REACTIONS (6)
  - Haemolysis [Unknown]
  - Diarrhoea [Recovered/Resolved]
  - Leukocytosis [Recovering/Resolving]
  - Haemoglobin decreased [Not Recovered/Not Resolved]
  - Spinal fracture [Not Recovered/Not Resolved]
  - Hyperglycaemia [Not Recovered/Not Resolved]

NARRATIVE: CASE EVENT DATE: 20150425
